FAERS Safety Report 16447189 (Version 1)
Quarter: 2019Q2

REPORT INFORMATION
  Report Type: Spontaneous
  Country: FR (occurrence: FR)
  Receive Date: 20190618
  Receipt Date: 20190618
  Transmission Date: 20190711
  Serious: Yes (Hospitalization)
  Sender: FDA-Public Use
  Company Number: FR-INCYTE CORPORATION-2019IN005907

PATIENT

DRUGS (2)
  1. ERYTHROPOIETIN [Concomitant]
     Active Substance: ERYTHROPOIETIN
     Indication: MYELOFIBROSIS
     Dosage: UNK
     Route: 065
  2. JAKAVI [Suspect]
     Active Substance: RUXOLITINIB
     Indication: MYELOFIBROSIS
     Dosage: UNK
     Route: 048

REACTIONS (6)
  - Dyspnoea exertional [Recovering/Resolving]
  - Hypotension [Recovering/Resolving]
  - Cardiogenic shock [Recovering/Resolving]
  - Lactic acidosis [Unknown]
  - Chest pain [Recovering/Resolving]
  - Stress cardiomyopathy [Recovering/Resolving]
